FAERS Safety Report 12721107 (Version 1)
Quarter: 2016Q3

REPORT INFORMATION
  Report Type: Spontaneous
  Country: US (occurrence: US)
  Receive Date: 20160907
  Receipt Date: 20160907
  Transmission Date: 20161109
  Serious: Yes (Other)
  Sender: FDA-Public Use
  Company Number: US-HORIZON-DUE-0163-2016

PATIENT
  Sex: Male

DRUGS (2)
  1. DUEXIS [Suspect]
     Active Substance: FAMOTIDINE\IBUPROFEN
     Indication: PRODUCT USED FOR UNKNOWN INDICATION
     Dosage: 1 TABLET TID
  2. DIAZEPAM. [Concomitant]
     Active Substance: DIAZEPAM

REACTIONS (5)
  - Vision blurred [Unknown]
  - Hypoaesthesia [Unknown]
  - Muscle spasms [Unknown]
  - Angioedema [Unknown]
  - Chest discomfort [Unknown]
